FAERS Safety Report 4919080-X (Version None)
Quarter: 2006Q1

REPORT INFORMATION
  Report Type: 
  Country: None (occurrence: None)
  Receive Date: 20060216
  Receipt Date: 20060207
  Transmission Date: 20060701
  Serious: Yes (Hospitalization, Other)
  Sender: FDA-Public Use
  Company Number: USA0509107717

PATIENT
  Age: 35 Year
  Sex: Female
  Weight: 86.4 kg

DRUGS (4)
  1. CYMBALTA [Suspect]
     Indication: DEPRESSION
     Dosage: 60 MG
  2. LAMICTAL [Concomitant]
  3. SEROQUEL [Concomitant]
  4. COMPRAL [Concomitant]

REACTIONS (7)
  - CONFUSIONAL STATE [None]
  - HEPATIC FAILURE [None]
  - HYPOTENSION [None]
  - MENTAL STATUS CHANGES [None]
  - OEDEMA [None]
  - RENAL FAILURE [None]
  - SEPSIS [None]
